FAERS Safety Report 7475467-5 (Version None)
Quarter: 2011Q2

REPORT INFORMATION
  Report Type: 
  Country: None (occurrence: None)
  Receive Date: 20110512
  Receipt Date: 20110502
  Transmission Date: 20111010
  Serious: Yes (Other)
  Sender: FDA-Public Use
  Company Number: PHHY2011CA38051

PATIENT
  Sex: Male

DRUGS (10)
  1. INSULIN [Concomitant]
  2. SERTRALINE [Concomitant]
  3. DEDROCAL [Concomitant]
  4. COUMADIN [Concomitant]
  5. GABAPENTIN [Concomitant]
  6. EXJADE [Suspect]
     Indication: THALASSAEMIA
     Dosage: 500 MG, QD
     Route: 048
  7. VITAMIN D [Concomitant]
  8. FOLIC ACID [Concomitant]
  9. CALCIUM [Concomitant]
  10. PERCOCET [Concomitant]

REACTIONS (2)
  - ABDOMINAL DISCOMFORT [None]
  - WEIGHT INCREASED [None]
